FAERS Safety Report 9447637 (Version 1)
Quarter: 2013Q3

REPORT INFORMATION
  Report Type: Spontaneous
  Country: US (occurrence: US)
  Receive Date: 20130805
  Receipt Date: 20130805
  Transmission Date: 20140515
  Serious: Yes (Hospitalization)
  Sender: FDA-Public Use
  Company Number: UTC-035905

PATIENT
  Age: 71 Year
  Sex: Female
  Weight: 52.27 kg

DRUGS (1)
  1. REMODULIN [Suspect]
     Indication: COR PULMONALE CHRONIC
     Route: 058
     Dates: start: 20120301

REACTIONS (5)
  - Abdominal pain [None]
  - Nausea [None]
  - Diarrhoea [None]
  - Liver function test abnormal [None]
  - Device issue [None]
